FAERS Safety Report 17005701 (Version 3)
Quarter: 2023Q2

REPORT INFORMATION
  Report Type: Spontaneous
  Country: FR (occurrence: None)
  Receive Date: 20191107
  Receipt Date: 20230505
  Transmission Date: 20230722
  Serious: Yes (Other)
  Sender: FDA-Public Use
  Company Number: None

PATIENT
  Age: 42 Year
  Sex: Female
  Weight: 63 kg

DRUGS (5)
  1. LEVOTHYROXINE [Suspect]
     Active Substance: LEVOTHYROXINE
     Indication: Post procedural hypothyroidism
     Route: 048
     Dates: start: 20170705, end: 20170710
  2. LEVOTHYROXINE [Suspect]
     Active Substance: LEVOTHYROXINE
     Dates: start: 20170710, end: 2017
  3. LEVOTHYROXINE [Suspect]
     Active Substance: LEVOTHYROXINE
     Dosage: OLD FORMULATION
  4. LEVOTHYROXINE [Suspect]
     Active Substance: LEVOTHYROXINE
     Dosage: OLD FORMULATION
     Dates: start: 20170814
  5. LEVOTHYROXINE [Suspect]
     Active Substance: LEVOTHYROXINE
     Dosage: OLD FORMULATION
     Dates: start: 20170924, end: 2017

REACTIONS (40)
  - Loss of personal independence in daily activities [Unknown]
  - Mental impairment [Unknown]
  - Oedema [Not Recovered/Not Resolved]
  - Drug tolerance decreased [Recovering/Resolving]
  - Blood thyroid stimulating hormone increased [Unknown]
  - Vertigo [Not Recovered/Not Resolved]
  - Dyspepsia [Not Recovered/Not Resolved]
  - Arthralgia [Not Recovered/Not Resolved]
  - Pain in extremity [Not Recovered/Not Resolved]
  - Gastrointestinal motility disorder [Unknown]
  - Acne [Unknown]
  - Dizziness [Not Recovered/Not Resolved]
  - Amnesia [Unknown]
  - Social avoidant behaviour [Unknown]
  - Migraine [Recovered/Resolved]
  - Malaise [Not Recovered/Not Resolved]
  - Impaired driving ability [Unknown]
  - Decreased interest [Unknown]
  - Burning sensation [Not Recovered/Not Resolved]
  - Weight increased [Not Recovered/Not Resolved]
  - Depression [Unknown]
  - Irritability [Not Recovered/Not Resolved]
  - Loss of personal independence in daily activities [Unknown]
  - Vestibular disorder [Unknown]
  - Fatigue [Not Recovered/Not Resolved]
  - Nausea [Unknown]
  - Libido disorder [Unknown]
  - Arthralgia [Unknown]
  - Alopecia [Not Recovered/Not Resolved]
  - Mood swings [Unknown]
  - Nervousness [Unknown]
  - Chest discomfort [Recovered/Resolved]
  - Chest pain [Unknown]
  - Rash [Not Recovered/Not Resolved]
  - Urticaria [Unknown]
  - Blood thyroid stimulating hormone decreased [Recovering/Resolving]
  - Weight decreased [Unknown]
  - Insomnia [Not Recovered/Not Resolved]
  - Headache [Not Recovered/Not Resolved]
  - Muscle spasms [Not Recovered/Not Resolved]

NARRATIVE: CASE EVENT DATE: 20170101
